FAERS Safety Report 10043937 (Version 1)
Quarter: 2014Q1

REPORT INFORMATION
  Report Type: Spontaneous
  Country: US (occurrence: US)
  Receive Date: 20140328
  Receipt Date: 20140328
  Transmission Date: 20141002
  Serious: No
  Sender: FDA-Public Use
  Company Number: US-MYLANLABS-2013S1007576

PATIENT
  Age: 49 Year
  Sex: Female

DRUGS (5)
  1. EMSAM (SELEGILINE TRANSDERMAL SYSTEM) [Suspect]
     Indication: MAJOR DEPRESSION
     Route: 062
     Dates: start: 20120710, end: 20130402
  2. LAMICTAL [Concomitant]
     Route: 048
  3. SEROQUEL [Concomitant]
  4. PREDNISONE [Concomitant]
     Indication: MULTIPLE ALLERGIES
     Dates: start: 20130320
  5. BENADRYL [Concomitant]
     Dates: start: 201302

REACTIONS (2)
  - Hypersensitivity [Recovering/Resolving]
  - Application site erythema [Recovering/Resolving]
